FAERS Safety Report 7612022-8 (Version None)
Quarter: 2011Q3

REPORT INFORMATION
  Report Type: 
  Country: None (occurrence: None)
  Receive Date: 20110715
  Receipt Date: 20110701
  Transmission Date: 20111222
  Serious: Yes (Hospitalization)
  Sender: FDA-Public Use
  Company Number: FI-JNJFOC-20110705714

PATIENT
  Sex: Female

DRUGS (1)
  1. XARELTO [Suspect]
     Indication: HIP ARTHROPLASTY
     Route: 048
     Dates: start: 20110530, end: 20110615

REACTIONS (3)
  - THROMBOPHLEBITIS SUPERFICIAL [None]
  - PULMONARY ARTERY THROMBOSIS [None]
  - PLATELET COUNT INCREASED [None]
